FAERS Safety Report 4759140-X (Version None)
Quarter: 2005Q3

REPORT INFORMATION
  Report Type: 
  Country: None (occurrence: None)
  Receive Date: 20050826
  Receipt Date: 20050816
  Transmission Date: 20060218
  Serious: Yes (Hospitalization)
  Sender: FDA-Public Use
  Company Number: HQWYE002018AUG05

PATIENT
  Age: 79 Year
  Sex: Female
  Weight: 59.02 kg

DRUGS (5)
  1. PREMARIN [Suspect]
     Indication: OESTROGEN REPLACEMENT THERAPY
     Dosage: 1.25 MG DAILY AND THEN DECREASED TO 0.625MG
     Dates: start: 19500101
  2. UNSPECIFIED ANTIHYPERTENSIVE AGENT (UNSPECIFIED ANTIHYPERTENSIVE AGENT [Concomitant]
  3. INDERAL [Concomitant]
  4. TYLENOL [Concomitant]
  5. ASCRIPTIN A/D (ACETYLSALICYLIC ACID/ALUMINIUM HYDROXIDE GEL/MAGNESIUM [Concomitant]

REACTIONS (4)
  - BLOOD PRESSURE INCREASED [None]
  - COLOSTOMY [None]
  - OVARIAN NEOPLASM [None]
  - WEIGHT DECREASED [None]
